FAERS Safety Report 6040097-9 (Version None)
Quarter: 2009Q1

REPORT INFORMATION
  Report Type: 
  Country: None (occurrence: None)
  Receive Date: 20090116
  Receipt Date: 20071212
  Transmission Date: 20090719
  Serious: Yes (Hospitalization)
  Sender: FDA-Public Use
  Company Number: US-BRISTOL-MYERS SQUIBB COMPANY-14012462

PATIENT
  Age: 10 Year
  Sex: Female
  Weight: 24 kg

DRUGS (1)
  1. ABILIFY [Suspect]

REACTIONS (4)
  - AFFECT LABILITY [None]
  - DROOLING [None]
  - HYPERSENSITIVITY [None]
  - TREMOR [None]
